FAERS Safety Report 18265886 (Version 1)
Quarter: 2020Q3

REPORT INFORMATION
  Report Type: Spontaneous
  Country: GB (occurrence: GB)
  Receive Date: 20200915
  Receipt Date: 20200915
  Transmission Date: 20201103
  Serious: No
  Sender: FDA-Public Use
  Company Number: GB-ALKEM LABORATORIES LIMITED-GB-ALKEM-2020-03331

PATIENT
  Age: 9 Year

DRUGS (1)
  1. SOLIFENACIN [Suspect]
     Active Substance: SOLIFENACIN
     Indication: HYPERTONIC BLADDER
     Dosage: 5 MILLIGRAM, EVERY
     Route: 048
     Dates: start: 20191213, end: 20200519

REACTIONS (2)
  - Supraventricular tachycardia [Recovering/Resolving]
  - Chest pain [Unknown]
